FAERS Safety Report 6794716-X (Version None)
Quarter: 2010Q2

REPORT INFORMATION
  Report Type: 
  Country: None (occurrence: None)
  Receive Date: 20100625
  Receipt Date: 20100612
  Transmission Date: 20101027
  Serious: Yes (Death, Hospitalization, Other)
  Sender: FDA-Public Use
  Company Number: US-BAYER-201029383GPV

PATIENT
  Age: 41 Year
  Sex: Male

DRUGS (9)
  1. FLUDARABINE [Suspect]
     Indication: CORD BLOOD TRANSPLANT THERAPY
  2. CYCLOPHOSPHAMIDE [Suspect]
     Indication: CORD BLOOD TRANSPLANT THERAPY
  3. ANTI-THYMOCYTE GLOBULIN NOS [Suspect]
     Indication: CORD BLOOD TRANSPLANT THERAPY
     Dosage: ON PRE-TRANSPLANT DAYS -3, -2 AND -1
  4. CYCLOSPORINE [Concomitant]
     Indication: PROPHYLAXIS AGAINST GRAFT VERSUS HOST DISEASE
  5. MYCOPHENOLATE MOFETIL [Concomitant]
     Indication: PROPHYLAXIS AGAINST GRAFT VERSUS HOST DISEASE
  6. IMMUNE GLOBULIN NOS [Concomitant]
     Indication: PROPHYLAXIS AGAINST GRAFT VERSUS HOST DISEASE
     Route: 042
  7. GANCICLOVIR [Concomitant]
     Indication: ANTIVIRAL PROPHYLAXIS
     Dosage: MONDAY THROUGH FRIDAY
     Route: 042
  8. PREDNISONE [Concomitant]
     Indication: ACUTE GRAFT VERSUS HOST DISEASE IN SKIN
  9. PREDNISONE [Concomitant]

REACTIONS (3)
  - ACUTE GRAFT VERSUS HOST DISEASE IN SKIN [None]
  - CYTOMEGALOVIRUS INFECTION [None]
  - MENINGOENCEPHALITIS HERPETIC [None]
